FAERS Safety Report 5808439-4 (Version None)
Quarter: 2008Q3

REPORT INFORMATION
  Report Type: 
  Country: None (occurrence: None)
  Receive Date: 20080714
  Receipt Date: 20080703
  Transmission Date: 20090109
  Serious: Yes (Other)
  Sender: FDA-Public Use
  Company Number: KR-JNJFOC-20080701366

PATIENT
  Age: 66 Year
  Sex: Male

DRUGS (4)
  1. ULTRACET [Suspect]
     Indication: RADICULAR PAIN
     Dosage: ACETAMINOPHEN 325 MG/TRAMADOL HCL 37.5 MG
     Route: 048
  2. STILLEN [Concomitant]
     Route: 048
  3. BEARSE [Concomitant]
     Route: 048
  4. AROBEST [Concomitant]
     Route: 048

REACTIONS (1)
  - INTRAOCULAR PRESSURE INCREASED [None]
